FAERS Safety Report 4820493-5 (Version None)
Quarter: 2005Q4

REPORT INFORMATION
  Report Type: 
  Country: None (occurrence: None)
  Receive Date: 20051014
  Receipt Date: 20050527
  Transmission Date: 20060501
  Serious: No
  Sender: FDA-Public Use
  Company Number: 2005SP002964

PATIENT
  Sex: 0

DRUGS (2)
  1. LUNESTA [Suspect]
     Dosage: 2 MG; ORAL; 3 MG; ORAL
     Route: 048
     Dates: start: 20050526, end: 20050526
  2. LUNESTA [Suspect]
     Dosage: 2 MG; ORAL; 3 MG; ORAL
     Route: 048
     Dates: start: 20050527, end: 20050527

REACTIONS (2)
  - DRUG INEFFECTIVE [None]
  - INSOMNIA [None]
